FAERS Safety Report 9158827 (Version 1)
Quarter: 2013Q1

REPORT INFORMATION
  Report Type: Spontaneous
  Country: US (occurrence: US)
  Receive Date: 20130313
  Receipt Date: 20130313
  Transmission Date: 20140127
  Serious: Yes (Hospitalization, Other)
  Sender: FDA-Public Use
  Company Number: US-AMGEN-USASP2013013136

PATIENT
  Age: 72 Year
  Sex: Female
  Weight: 83.9 kg

DRUGS (7)
  1. NEULASTA [Suspect]
     Indication: PRODUCT USED FOR UNKNOWN INDICATION
     Dosage: 6 MG, QWK
     Route: 058
     Dates: start: 20130125
  2. NEUPOGEN [Suspect]
     Indication: PRODUCT USED FOR UNKNOWN INDICATION
     Dosage: 480 MG, UNK
  3. CARBOPLATIN [Concomitant]
     Indication: NON-SMALL CELL LUNG CANCER
     Dosage: 300 MG, UNK
     Dates: start: 20121010, end: 20130219
  4. VP 16-213 [Concomitant]
     Indication: NON-SMALL CELL LUNG CANCER
     Dosage: 135 MG, UNK
     Dates: start: 20121010, end: 20130219
  5. DIAZEPAM [Concomitant]
     Dosage: RARELY TAKEN AT HS.
  6. DECADRON                           /00016001/ [Concomitant]
     Dosage: 10 MG, UNK
     Route: 042
  7. ALOXI [Concomitant]
     Dosage: 250 MUG, UNK
     Route: 042

REACTIONS (18)
  - Abdominal pain [Unknown]
  - Platelet count abnormal [Unknown]
  - Neoplasm recurrence [Unknown]
  - Vitreous floaters [Recovered/Resolved]
  - Photopsia [Recovered/Resolved]
  - Local swelling [Unknown]
  - Dyspnoea exertional [Unknown]
  - Upper respiratory tract infection [Unknown]
  - Gastrooesophageal reflux disease [Unknown]
  - Nocturia [Unknown]
  - Chest pain [Recovered/Resolved]
  - Fatigue [Unknown]
  - Pain [Unknown]
  - Myalgia [Unknown]
  - Arthralgia [Unknown]
  - Phlebitis superficial [Unknown]
  - Rash vesicular [Unknown]
  - Decreased activity [Unknown]
